FAERS Safety Report 5404928-5 (Version None)
Quarter: 2007Q3

REPORT INFORMATION
  Report Type: 
  Country: None (occurrence: None)
  Receive Date: 20070801
  Receipt Date: 20070801
  Transmission Date: 20080115
  Serious: No
  Sender: FDA-Public Use
  Company Number: None

PATIENT
  Age: 57 Year
  Sex: Female
  Weight: 74.8435 kg

DRUGS (1)
  1. ZICAM NASAL SPRAY [Suspect]
     Indication: NASOPHARYNGITIS
     Dosage: 1 SPRAY  ONCE  NASAL
     Route: 045
     Dates: start: 20061022, end: 20061022

REACTIONS (6)
  - AGNOSIA [None]
  - ANOSMIA [None]
  - BURNING SENSATION [None]
  - DYSGEUSIA [None]
  - NASAL DISCOMFORT [None]
  - PHARMACEUTICAL PRODUCT COMPLAINT [None]
